FAERS Safety Report 7789869-0 (Version None)
Quarter: 2011Q3

REPORT INFORMATION
  Report Type: 
  Country: None (occurrence: None)
  Receive Date: 20110930
  Receipt Date: 20100922
  Transmission Date: 20111222
  Serious: No
  Sender: FDA-Public Use
  Company Number: US-ASTRAZENECA-2010SE44917

PATIENT
  Sex: Female

DRUGS (2)
  1. ARIMIDEX [Suspect]
     Route: 048
  2. CRESTOR [Suspect]
     Route: 048

REACTIONS (5)
  - MUSCULAR WEAKNESS [None]
  - ARTHRITIS [None]
  - NERVOUS SYSTEM DISORDER [None]
  - MEMORY IMPAIRMENT [None]
  - PAIN [None]
